FAERS Safety Report 8445993-0 (Version None)
Quarter: 2012Q2

REPORT INFORMATION
  Report Type: 
  Country: None (occurrence: None)
  Receive Date: 20120618
  Receipt Date: 20120612
  Transmission Date: 20120825
  Serious: Yes (Other)
  Sender: FDA-Public Use
  Company Number: US-PFIZER INC-2012124436

PATIENT
  Sex: Female
  Weight: 67.12 kg

DRUGS (4)
  1. LISINOPRIL [Concomitant]
     Indication: HYPERTENSION
     Dosage: 10 MG, DAILY
  2. PRAVASTATIN [Concomitant]
     Indication: BLOOD CHOLESTEROL INCREASED
     Dosage: 40 MG, DAILY
  3. GABAPENTIN [Suspect]
     Indication: DIABETIC NEUROPATHY
     Dosage: 300 MG, 2X/DAY
     Dates: start: 20120501, end: 20120501
  4. GABAPENTIN [Suspect]
     Dosage: 300 MG, DAILY
     Dates: start: 20120501, end: 20120521

REACTIONS (4)
  - PAIN [None]
  - VISION BLURRED [None]
  - INSOMNIA [None]
  - HYPERSOMNIA [None]
